FAERS Safety Report 15656237 (Version 1)
Quarter: 2018Q4

REPORT INFORMATION
  Report Type: Spontaneous
  Country: US (occurrence: US)
  Receive Date: 20181126
  Receipt Date: 20181126
  Transmission Date: 20190205
  Serious: Yes (Other)
  Sender: FDA-Public Use
  Company Number: US-LPDUSPRD-20182190

PATIENT
  Age: 26 Year
  Sex: Female

DRUGS (1)
  1. INJECTAFER [Suspect]
     Active Substance: FERRIC CARBOXYMALTOSE
     Dosage: 750 MG IN 250 ML SALINE
     Route: 042
     Dates: start: 20181108, end: 20181108

REACTIONS (5)
  - Blood pressure decreased [Unknown]
  - Oxygen saturation decreased [Unknown]
  - Chest discomfort [Unknown]
  - Unresponsive to stimuli [Unknown]
  - Throat irritation [Unknown]

NARRATIVE: CASE EVENT DATE: 20181108
